FAERS Safety Report 24541195 (Version 2)
Quarter: 2024Q4

REPORT INFORMATION
  Report Type: Spontaneous
  Country: IT (occurrence: IT)
  Receive Date: 20241023
  Receipt Date: 20241119
  Transmission Date: 20250115
  Serious: Yes (Hospitalization, Other)
  Sender: DAIICHI
  Company Number: IT-DSJP-DS-2024-103397-IT

PATIENT
  Age: 56 Year
  Sex: Male

DRUGS (2)
  1. TRASTUZUMAB DERUXTECAN [Suspect]
     Active Substance: TRASTUZUMAB DERUXTECAN
     Indication: Oesophageal adenocarcinoma
     Dosage: 6.4 MG/KG, CYCLIC
     Route: 065
     Dates: start: 202402, end: 202402
  2. TRASTUZUMAB DERUXTECAN [Suspect]
     Active Substance: TRASTUZUMAB DERUXTECAN
     Indication: Metastatic gastric cancer
     Dosage: 6.4 MG/KG, CYCLIC
     Route: 065
     Dates: start: 202407, end: 202407

REACTIONS (9)
  - Hyperpyrexia [Unknown]
  - Leukocytosis [Unknown]
  - Metastases to liver [Not Recovered/Not Resolved]
  - Disease progression [Not Recovered/Not Resolved]
  - Influenza [Unknown]
  - Infection [Unknown]
  - Nausea [Recovered/Resolved]
  - Diarrhoea [Recovered/Resolved]
  - Asthenia [Not Recovered/Not Resolved]

NARRATIVE: CASE EVENT DATE: 20240228
